FAERS Safety Report 21364416 (Version 1)
Quarter: 2022Q3

REPORT INFORMATION
  Report Type: Other
  Country: GB (occurrence: GB)
  Receive Date: 20220922
  Receipt Date: 20220922
  Transmission Date: 20221027
  Serious: Yes (Hospitalization)
  Sender: FDA-Public Use
  Company Number: None

PATIENT
  Age: 72 Year
  Sex: Female
  Weight: 59 kg

DRUGS (12)
  1. VANCOMYCIN [Suspect]
     Active Substance: VANCOMYCIN
     Indication: Ill-defined disorder
     Dosage: UNK
     Route: 065
     Dates: start: 20220825
  2. ATORVASTATIN [Concomitant]
     Active Substance: ATORVASTATIN
     Indication: Ill-defined disorder
     Dosage: UNK, QD (TAKE ONE TABLET ONCE A DAY)
     Route: 065
     Dates: start: 20220330
  3. AZELASTINE [Concomitant]
     Active Substance: AZELASTINE
     Indication: Ill-defined disorder
     Dosage: UNK, BID (ONE SPRAY TO BE USED IN EACH NOSTRIL TWICE A DAY)
     Route: 065
     Dates: start: 20220330
  4. FEXOFENADINE [Concomitant]
     Active Substance: FEXOFENADINE HYDROCHLORIDE
     Indication: Ill-defined disorder
     Dosage: UNK, QD ( TAKE ONE DAILY)
     Route: 065
     Dates: start: 20220330
  5. LATANOPROST [Concomitant]
     Active Substance: LATANOPROST
     Indication: Ill-defined disorder
     Dosage: UNK, INSTIL ONE DROP IN TO THE BOTH EYES DAILY AS DI...
     Route: 065
     Dates: start: 20220330
  6. POLYETHYLENE GLYCOLS [Concomitant]
     Active Substance: POLYETHYLENE GLYCOLS
     Indication: Ill-defined disorder
     Dosage: UNK, THE CONTENTS OF ONE SACHET TO BE DISSOLVED IN H...
     Route: 065
     Dates: start: 20220330
  7. NAPROXEN [Concomitant]
     Active Substance: NAPROXEN
     Indication: Ill-defined disorder
     Dosage: 1 TABLETS, BID (TAKE ONE TABLET TWICE DAILY FOR PAIN )
     Route: 065
     Dates: start: 20220330
  8. NAPROXEN [Concomitant]
     Active Substance: NAPROXEN
     Indication: Pain
  9. OMEPRAZOLE [Concomitant]
     Active Substance: OMEPRAZOLE
     Indication: Ill-defined disorder
     Dosage: UNK, QD (ONE OD)
     Route: 065
     Dates: start: 20220330
  10. ACETAMINOPHEN [Concomitant]
     Active Substance: ACETAMINOPHEN
     Indication: Ill-defined disorder
     Dosage: UNK, QID, TAKE 2 FOUR TIMES/DAY REGULARLY (PAIN CONTROL)
     Route: 065
     Dates: start: 20220330
  11. ACETAMINOPHEN [Concomitant]
     Active Substance: ACETAMINOPHEN
     Indication: Pain
  12. PREGABALIN [Concomitant]
     Active Substance: PREGABALIN
     Indication: Ill-defined disorder
     Dosage: UNK, TID (2 TDS)
     Route: 065
     Dates: start: 20220330

REACTIONS (1)
  - Burns second degree [Recovered/Resolved]

NARRATIVE: CASE EVENT DATE: 20220825
